FAERS Safety Report 23929400 (Version 1)
Quarter: 2024Q2

REPORT INFORMATION
  Report Type: Spontaneous
  Country: US (occurrence: US)
  Receive Date: 20240601
  Receipt Date: 20240601
  Transmission Date: 20240716
  Serious: No
  Sender: FDA-Public Use
  Company Number: US-RADIUS HEALTH INC.-2024US002345

PATIENT
  Sex: Female
  Weight: 55.238 kg

DRUGS (5)
  1. TYMLOS [Suspect]
     Active Substance: ABALOPARATIDE
     Indication: Senile osteoporosis
     Dosage: 80 MICROGRAM, QD
     Route: 058
     Dates: start: 202306
  2. VITAMIN C [Concomitant]
     Active Substance: ASCORBIC ACID
     Indication: Product used for unknown indication
  3. MINERALS\VITAMINS [Concomitant]
     Active Substance: MINERALS\VITAMINS
  4. CALTRATE [Concomitant]
     Active Substance: CALCIUM CARBONATE
     Indication: Product used for unknown indication
  5. VITAMIN D NOS [Concomitant]
     Active Substance: CHOLECALCIFEROL\ERGOCALCIFEROL
     Indication: Product used for unknown indication

REACTIONS (3)
  - Tremor [Unknown]
  - Dysgeusia [Unknown]
  - Heart rate increased [Unknown]
